FAERS Safety Report 9959203 (Version 1)
Quarter: 2014Q1

REPORT INFORMATION
  Report Type: Report from Study
  Country: US (occurrence: US)
  Receive Date: 20140305
  Receipt Date: 20140305
  Transmission Date: 20141002
  Serious: No
  Sender: FDA-Public Use
  Company Number: US-ABBVIE-13P-163-1102281-00

PATIENT
  Age: 52 Year
  Sex: Female

DRUGS (16)
  1. HUMIRA [Suspect]
     Indication: COLITIS ULCERATIVE
     Dates: start: 20130211
  2. COLAZAL [Concomitant]
     Indication: PRODUCT USED FOR UNKNOWN INDICATION
  3. MULTIVITAMIN [Concomitant]
     Indication: VITAMIN SUPPLEMENTATION
     Dosage: PER DAY
  4. CELEBREX [Concomitant]
     Indication: ARTHRALGIA
  5. LESSINA [Concomitant]
     Indication: CONTRACEPTION
     Dosage: 28 TABS/1 PER DAY FOR BIRTH CONTROL
  6. LOMOTIL [Concomitant]
     Indication: DIARRHOEA
     Dosage: HASN^T HAD TO USE IT LATELY
  7. AMBIEN [Concomitant]
     Indication: INSOMNIA
     Dosage: AT BEDTIME
  8. ALLEGRA 24 HOUR [Concomitant]
     Indication: HYPERSENSITIVITY
  9. PROBIOTIC [Concomitant]
     Indication: GASTRIC DISORDER
     Dosage: DAILY
  10. TYLENOL [Concomitant]
     Indication: PAIN
  11. PREVACID [Concomitant]
     Indication: GASTROOESOPHAGEAL REFLUX DISEASE
     Dosage: 30 MG DIALY
  12. PREDNISONE [Concomitant]
     Dosage: WAS WEANED OFF
  13. PROZAC [Concomitant]
     Indication: PRODUCT USED FOR UNKNOWN INDICATION
     Dates: end: 20130423
  14. AMITRIPTYLINE [Concomitant]
     Indication: PRODUCT USED FOR UNKNOWN INDICATION
     Dosage: 25 MG DAILY
  15. XANAX [Concomitant]
     Indication: PRODUCT USED FOR UNKNOWN INDICATION
  16. ALPRAZOLAM [Concomitant]
     Indication: PRODUCT USED FOR UNKNOWN INDICATION
     Dosage: 2 MG DAILY

REACTIONS (2)
  - Vertigo [Recovering/Resolving]
  - Hypoaesthesia [Not Recovered/Not Resolved]
